FAERS Safety Report 9962003 (Version 1)
Quarter: 2014Q1

REPORT INFORMATION
  Report Type: Report from Study
  Country: PR (occurrence: PR)
  Receive Date: 20140305
  Receipt Date: 20140305
  Transmission Date: 20141002
  Serious: No
  Sender: FDA-Public Use
  Company Number: PR-ABBVIE-13P-131-1114444-00

PATIENT
  Age: 53 Year
  Sex: Female
  Weight: 74.46 kg

DRUGS (9)
  1. HUMIRA [Suspect]
     Indication: RHEUMATOID ARTHRITIS
     Route: 058
  2. HUMIRA [Suspect]
     Indication: PSORIASIS
  3. ATELONOL [Concomitant]
     Indication: HYPERTENSION
     Route: 048
  4. SYNTROID [Concomitant]
     Indication: THYROID DISORDER
     Route: 048
     Dates: start: 1995
  5. TEMAZEPAM [Concomitant]
     Indication: INSOMNIA
     Route: 048
  6. GABAPENTIN [Concomitant]
     Indication: PAIN
     Route: 048
  7. CALCIMAX [Concomitant]
     Indication: SUPPLEMENTATION THERAPY
     Route: 048
  8. CITALOPRAM [Concomitant]
     Indication: DEPRESSION
     Route: 048
  9. MIRTAZAPINA [Concomitant]
     Indication: INSOMNIA
     Route: 048

REACTIONS (1)
  - Injection site pain [Recovered/Resolved]
